FAERS Safety Report 6754694-6 (Version None)
Quarter: 2010Q2

REPORT INFORMATION
  Report Type: 
  Country: None (occurrence: None)
  Receive Date: 20100603
  Receipt Date: 20100524
  Transmission Date: 20101027
  Serious: Yes (Death, Hospitalization)
  Sender: FDA-Public Use
  Company Number: PL-BAXTER-2010BH014185

PATIENT
  Age: 75 Year
  Sex: Female

DRUGS (3)
  1. DIANEAL [Suspect]
     Indication: PERITONEAL DIALYSIS
     Route: 033
     Dates: end: 20100424
  2. DIANEAL [Suspect]
     Route: 033
     Dates: end: 20100424
  3. NUTRINEAL [Suspect]
     Indication: PERITONEAL DIALYSIS
     Route: 033
     Dates: end: 20100424

REACTIONS (4)
  - ARTERIOSCLEROSIS [None]
  - CARDIOVASCULAR INSUFFICIENCY [None]
  - RESPIRATORY FAILURE [None]
  - SEPSIS [None]
